FAERS Safety Report 7536459-0 (Version None)
Quarter: 2011Q2

REPORT INFORMATION
  Report Type: 
  Country: None (occurrence: None)
  Receive Date: 20110602
  Receipt Date: 20110511
  Transmission Date: 20111010
  Serious: Yes (Life-Threatening, Other)
  Sender: FDA-Public Use
  Company Number: GB-DEXPHARM-20110503

PATIENT
  Age: 74 Year
  Sex: Male

DRUGS (2)
  1. CHLORHEXIDINE GLUCONATE [Suspect]
  2. CHLORHEXIDINE GLUCONATE [Suspect]

REACTIONS (2)
  - CIRCULATORY COLLAPSE [None]
  - ANAPHYLACTIC REACTION [None]
